FAERS Safety Report 6083085-9 (Version None)
Quarter: 2009Q1

REPORT INFORMATION
  Report Type: 
  Country: None (occurrence: None)
  Receive Date: 20090218
  Receipt Date: 20090211
  Transmission Date: 20090719
  Serious: Yes (Other)
  Sender: FDA-Public Use
  Company Number: US-JNJCH-2009004149

PATIENT
  Age: 7 Year
  Sex: Female
  Weight: 46.7 kg

DRUGS (2)
  1. ZYRTEC [Suspect]
     Indication: HYPERSENSITIVITY
     Dosage: TEXT:1 TABLET FOR 4 DAYS/1/2 TABLET FOR 1 DAY 1X DAY FOR 5 DAYS
     Route: 048
  2. ANTIHISTAMINES [Suspect]
     Indication: NASAL CONGESTION
     Dosage: TEXT:6/5 TEASPOON ONCE A DAY
     Route: 048

REACTIONS (2)
  - AGGRESSION [None]
  - DRUG INTERACTION [None]
